FAERS Safety Report 4780930-1 (Version None)
Quarter: 2005Q3

REPORT INFORMATION
  Report Type: 
  Country: None (occurrence: None)
  Receive Date: 20050926
  Receipt Date: 20060909
  Transmission Date: 20060218
  Serious: Yes (Other)
  Sender: FDA-Public Use
  Company Number: B0394504A

PATIENT
  Age: 49 Year
  Sex: Male

DRUGS (8)
  1. ADVAIR DISKUS 100/50 [Suspect]
     Indication: ASTHMA
     Dosage: INHALED
     Route: 055
  2. RITONAVIR (FORMULATION UNKNOWN) (RITONAVIR) [Suspect]
     Indication: HIV INFECTION
  3. SAQUINAVIR [Concomitant]
  4. COMBIVIR [Concomitant]
  5. BUDESONIDE [Concomitant]
  6. CORTICOSTEROID [Concomitant]
  7. PREDNISOLONE [Concomitant]
  8. EFAVIRENZ [Concomitant]

REACTIONS (11)
  - ABDOMINAL DISTENSION [None]
  - ADRENAL SUPPRESSION [None]
  - ASTHENIA [None]
  - ASTHMA [None]
  - CUSHING'S SYNDROME [None]
  - DIZZINESS [None]
  - FATIGUE [None]
  - HYPERTENSION [None]
  - LETHARGY [None]
  - OSTEOPOROSIS [None]
  - SWELLING FACE [None]
